FAERS Safety Report 21132837 (Version 2)
Quarter: 2022Q3

REPORT INFORMATION
  Report Type: Spontaneous
  Country: US (occurrence: US)
  Receive Date: 20220726
  Receipt Date: 20220810
  Transmission Date: 20221026
  Serious: Yes (Other)
  Sender: FDA-Public Use
  Company Number: US-PFIZER INC-202200360091

PATIENT
  Age: 53 Year
  Sex: Female
  Weight: 115.67 kg

DRUGS (3)
  1. LORBRENA [Suspect]
     Active Substance: LORLATINIB
     Indication: Neuroblastoma
     Dosage: 50 MG, 1X/DAY
     Dates: start: 201906
  2. ADDERALL [Suspect]
     Active Substance: AMPHETAMINE ASPARTATE\AMPHETAMINE SULFATE\DEXTROAMPHETAMINE SACCHARATE\DEXTROAMPHETAMINE SULFATE
     Dosage: UNK
  3. ROSUVASTATIN [Concomitant]
     Active Substance: ROSUVASTATIN
     Dosage: 10 MG, DAILY
     Dates: start: 202010

REACTIONS (5)
  - Osteoarthritis [Unknown]
  - Arthropathy [Not Recovered/Not Resolved]
  - Tooth abscess [Recovered/Resolved]
  - Tooth disorder [Recovered/Resolved]
  - Insomnia [Unknown]

NARRATIVE: CASE EVENT DATE: 20220401
